FAERS Safety Report 18362716 (Version 2)
Quarter: 2021Q4

REPORT INFORMATION
  Report Type: Spontaneous
  Country: US (occurrence: US)
  Receive Date: 20201009
  Receipt Date: 20211214
  Transmission Date: 20220303
  Serious: Yes (Other)
  Sender: FDA-Public Use
  Company Number: US-SAARTEMIS-SAC202010010092

PATIENT
  Age: 68 Year
  Sex: Male

DRUGS (1)
  1. ZANTAC [Suspect]
     Active Substance: RANITIDINE HYDROCHLORIDE
     Indication: Hyperchlorhydria
     Dosage: 300 MG, QD
     Dates: start: 201001, end: 201704

REACTIONS (2)
  - Nasal cavity cancer [Unknown]
  - Throat cancer [Recovering/Resolving]

NARRATIVE: CASE EVENT DATE: 20160101
